FAERS Safety Report 5386267-4 (Version None)
Quarter: 2007Q3

REPORT INFORMATION
  Report Type: 
  Country: None (occurrence: None)
  Receive Date: 20070710
  Receipt Date: 20070710
  Transmission Date: 20080115
  Serious: Yes (Hospitalization, Disabling, Other)
  Sender: FDA-Public Use
  Company Number: None

PATIENT
  Age: 17 Year
  Sex: Female
  Weight: 142.8831 kg

DRUGS (2)
  1. ENOXAPARIN SODIUM [Suspect]
     Indication: THROMBOSIS PROPHYLAXIS
     Dosage: 40MG BID IV
     Route: 042
     Dates: start: 20070603, end: 20070609
  2. HEPARIN [Suspect]
     Dosage: IV
     Route: 042
     Dates: start: 20070603, end: 20070604

REACTIONS (6)
  - EMBOLISM [None]
  - HEPARIN-INDUCED THROMBOCYTOPENIA [None]
  - INJURY [None]
  - ISCHAEMIA [None]
  - LEG AMPUTATION [None]
  - NECROSIS [None]
